FAERS Safety Report 6086805-2 (Version None)
Quarter: 2009Q1

REPORT INFORMATION
  Report Type: 
  Country: None (occurrence: None)
  Receive Date: 20090223
  Receipt Date: 20090210
  Transmission Date: 20090719
  Serious: Yes (Other)
  Sender: FDA-Public Use
  Company Number: CA-ROCHE-613826

PATIENT
  Age: 14 Year
  Sex: Male

DRUGS (3)
  1. ACCUTANE [Suspect]
     Indication: ACNE
     Dosage: DOSE: 10 MG, 2X ONCE DAILY
     Route: 048
     Dates: start: 20090101, end: 20090209
  2. CONCERTA [Concomitant]
     Dosage: OVERDOSE THERAPY, FORM: PILL
     Route: 048
     Dates: start: 20090208, end: 20090208
  3. CONCERTA [Concomitant]
     Route: 048
     Dates: start: 20060101

REACTIONS (1)
  - SUICIDE ATTEMPT [None]
